FAERS Safety Report 13675494 (Version 3)
Quarter: 2017Q3

REPORT INFORMATION
  Report Type: Spontaneous
  Country: US (occurrence: US)
  Receive Date: 20170621
  Receipt Date: 20170725
  Transmission Date: 20171127
  Serious: Yes (Hospitalization)
  Sender: FDA-Public Use
  Company Number: US-VERTEX PHARMACEUTICALS-2017-003275

PATIENT
  Age: 15 Year
  Sex: Female
  Weight: 53 kg

DRUGS (15)
  1. ZENPEP [Concomitant]
     Active Substance: PANCRELIPASE AMYLASE\PANCRELIPASE LIPASE\PANCRELIPASE PROTEASE
     Dosage: 20,000 FIVE WITH MEALS AND SNACKS FOR 1883 UNITS OF LIPASE PER KILOGRAM PER MEAL
  2. ALBUTEROL. [Concomitant]
     Active Substance: ALBUTEROL
     Dosage: 2 INHALATIONS WITH AN AEROCHAMBER, BID
     Route: 055
  3. CITRATE [Concomitant]
     Active Substance: CITRIC ACID MONOHYDRATE
     Dosage: 1 DF, BID
  4. DORNASE ALFA. [Concomitant]
     Active Substance: DORNASE ALFA
     Dosage: 1 VIAL, BIDUNK
     Route: 055
  5. FLOVENT HFA [Concomitant]
     Active Substance: FLUTICASONE PROPIONATE
     Dosage: 2 PUFFS, BID
     Route: 055
  6. ADEKS [Concomitant]
     Dosage: 1 TABLET TWICE DAILY
  7. ALBUTEROL. [Concomitant]
     Active Substance: ALBUTEROL
     Dosage: 4 PUFFS, BID
     Route: 055
  8. FLONASE [Concomitant]
     Active Substance: FLUTICASONE PROPIONATE
     Dosage: 1 SPRAY
     Route: 045
  9. ORKAMBI [Suspect]
     Active Substance: IVACAFTOR\LUMACAFTOR
     Indication: CYSTIC FIBROSIS
     Dosage: 2 DF (200/125MG EACH), BID
     Route: 048
     Dates: start: 20160228
  10. DORNASE ALFA. [Concomitant]
     Active Substance: DORNASE ALFA
     Dosage: 2.5 MG, QD
  11. LORATADINE. [Concomitant]
     Active Substance: LORATADINE
     Dosage: 10 MG ONCE TO TWICE DAILY
  12. MIRALAX [Concomitant]
     Active Substance: POLYETHYLENE GLYCOL 3350
     Dosage: DAILY
  13. HYPERTONIC SALINE SOLUTION [Concomitant]
     Active Substance: SODIUM CHLORIDE
     Dosage: ONCE DAILY
     Route: 055
  14. TOBI [Concomitant]
     Active Substance: TOBRAMYCIN
     Dosage: 300 MG NEBULIZED TWICE DAILY, 28 DAYS ON, 28 DAYS OFF
     Route: 055
  15. PROTONIX [Concomitant]
     Active Substance: PANTOPRAZOLE SODIUM

REACTIONS (3)
  - Infective pulmonary exacerbation of cystic fibrosis [Recovered/Resolved]
  - Mycobacterial disease carrier [Unknown]
  - Bronchitis [Unknown]

NARRATIVE: CASE EVENT DATE: 20160809
